FAERS Safety Report 6181130-3 (Version None)
Quarter: 2009Q2

REPORT INFORMATION
  Report Type: 
  Country: None (occurrence: None)
  Receive Date: 20090501
  Receipt Date: 20090129
  Transmission Date: 20091009
  Serious: No
  Sender: FDA-Public Use
  Company Number: 2009000188

PATIENT
  Age: 53 Year
  Sex: Female
  Weight: 53.978 kg

DRUGS (4)
  1. TREANDA [Suspect]
     Indication: NON-HODGKIN'S LYMPHOMA
     Dosage: (70 MG/M2, DAY 1 + 2 OF 28 DAY CYCLE), INTRAVENOUS
     Route: 042
     Dates: start: 20090115, end: 20090116
  2. DEXAMETHASONE 4MG TAB [Concomitant]
  3. RITUXIMAB [Concomitant]
  4. ZOFRAN [Concomitant]

REACTIONS (2)
  - CHILLS [None]
  - PYREXIA [None]
